FAERS Safety Report 6113006-1 (Version None)
Quarter: 2009Q1

REPORT INFORMATION
  Report Type: 
  Country: None (occurrence: None)
  Receive Date: 20090312
  Receipt Date: 20090309
  Transmission Date: 20090719
  Serious: Yes (Other)
  Sender: FDA-Public Use
  Company Number: B0555177A

PATIENT
  Age: 70 Year
  Sex: Male
  Weight: 49.2 kg

DRUGS (9)
  1. VALTREX [Suspect]
     Indication: HERPES ZOSTER
     Dosage: 250MG PER DAY
     Route: 048
     Dates: start: 20090108, end: 20090110
  2. DIOVAN [Concomitant]
     Indication: HYPERTENSION
     Dosage: 80MG PER DAY
     Route: 048
  3. CONIEL [Concomitant]
     Indication: HYPERTENSION
     Dosage: 8MG PER DAY
     Route: 048
  4. CALTAN [Concomitant]
     Indication: RENAL FAILURE
     Dosage: 3 PER DAY
     Route: 048
  5. ZYLORIC [Concomitant]
     Route: 048
  6. ARGAMATE [Concomitant]
     Dosage: 25G PER DAY
     Route: 048
  7. ONEALFA [Concomitant]
     Dosage: .5MCG PER DAY
     Route: 048
  8. DEPAS [Concomitant]
     Dosage: .5MG PER DAY
     Route: 048
  9. ALOSENN [Concomitant]
     Dosage: .5G PER DAY
     Route: 048

REACTIONS (3)
  - ALTERED STATE OF CONSCIOUSNESS [None]
  - DYSLALIA [None]
  - HALLUCINATION [None]
